FAERS Safety Report 5932893-0 (Version None)
Quarter: 2008Q4

REPORT INFORMATION
  Report Type: 
  Country: None (occurrence: None)
  Receive Date: 20081028
  Receipt Date: 20081020
  Transmission Date: 20090506
  Serious: Yes (Hospitalization)
  Sender: FDA-Public Use
  Company Number: US-KINGPHARMUSA00001-K200801205

PATIENT

DRUGS (2)
  1. ALTACE [Suspect]
     Indication: ESSENTIAL HYPERTENSION
     Dosage: UNK, UNK
     Route: 048
     Dates: start: 20070205
  2. ESIDREX                            /00022001/ [Concomitant]
     Indication: ESSENTIAL HYPERTENSION
     Dosage: 25 MG, UNK
     Dates: start: 20070430

REACTIONS (5)
  - DEHYDRATION [None]
  - FALL [None]
  - HYPOKALAEMIA [None]
  - INJURY [None]
  - SYNCOPE [None]
